FAERS Safety Report 10957290 (Version 1)
Quarter: 2015Q1

REPORT INFORMATION
  Report Type: Spontaneous
  Country: US (occurrence: None)
  Receive Date: 20150226
  Receipt Date: 20150226
  Transmission Date: 20150721
  Serious: No
  Sender: FDA-Public Use
  Company Number: TAP2005Q02128

PATIENT
  Age: 43 Year
  Sex: Female
  Weight: 76.3 kg

DRUGS (1)
  1. PREVACID [Suspect]
     Active Substance: LANSOPRAZOLE
     Indication: GASTROOESOPHAGEAL REFLUX DISEASE
     Route: 048
     Dates: start: 20051205, end: 20051205

REACTIONS (3)
  - Dyspnoea [None]
  - Chest discomfort [None]
  - Palpitations [None]

NARRATIVE: CASE EVENT DATE: 20051205
